FAERS Safety Report 12629483 (Version 1)
Quarter: 2016Q3

REPORT INFORMATION
  Report Type: Spontaneous
  Country: US (occurrence: US)
  Receive Date: 20160808
  Receipt Date: 20160808
  Transmission Date: 20161109
  Serious: No
  Sender: FDA-Public Use
  Company Number: US-BAYER-2016-152898

PATIENT
  Age: 90 Year
  Sex: Female
  Weight: 68.27 kg

DRUGS (1)
  1. ALEVE PM [Suspect]
     Active Substance: DIPHENHYDRAMINE HYDROCHLORIDE\NAPROXEN SODIUM
     Indication: SLEEP DISORDER THERAPY
     Dosage: 1 DF, QD WITH FULL GLASS OF WATER
     Route: 048
     Dates: start: 201607

REACTIONS (1)
  - Product use issue [None]

NARRATIVE: CASE EVENT DATE: 201607
